FAERS Safety Report 10925583 (Version 1)
Quarter: 2015Q1

REPORT INFORMATION
  Report Type: Spontaneous
  Country: US (occurrence: None)
  Receive Date: 20150129
  Receipt Date: 20150129
  Transmission Date: 20150721
  Serious: Yes (Hospitalization, Other)
  Sender: FDA-Public Use
  Company Number: 2014000946

PATIENT
  Age: 5 Year
  Sex: Male

DRUGS (5)
  1. VALPROIC ACID (VALPROATE SODIUM) [Concomitant]
  2. LORAZEPAM. [Concomitant]
     Active Substance: LORAZEPAM
  3. LEVETIRACTAM [Suspect]
     Active Substance: LEVETIRACETAM
     Indication: STATUS EPILEPTICUS
  4. PHENOBARBITAL (PHENOBARBITAL SODIUM) [Concomitant]
  5. FOSPHENYTOIN [Concomitant]
     Active Substance: FOSPHENYTOIN\FOSPHENYTOIN SODIUM

REACTIONS (1)
  - Drug ineffective for unapproved indication [None]
